FAERS Safety Report 4579033-0 (Version None)
Quarter: 2005Q1

REPORT INFORMATION
  Report Type: 
  Country: None (occurrence: None)
  Receive Date: 20050211
  Receipt Date: 20050201
  Transmission Date: 20050727
  Serious: Yes (Other)
  Sender: FDA-Public Use
  Company Number: US-MERCK-0502USA00290

PATIENT
  Age: 66 Year
  Sex: Female
  Weight: 64 kg

DRUGS (6)
  1. VIOXX [Suspect]
     Indication: OSTEOPOROSIS
     Route: 048
     Dates: start: 20000101
  2. VIOXX [Suspect]
     Indication: OSTEOARTHRITIS
     Route: 048
     Dates: start: 20000101
  3. MENEST [Concomitant]
     Route: 048
  4. FOSAMAX [Concomitant]
     Route: 048
  5. ASPIRIN [Concomitant]
     Route: 048
  6. TYLENOL PM [Concomitant]
     Route: 048

REACTIONS (21)
  - ANXIETY [None]
  - ARTHROPATHY [None]
  - BALANCE DISORDER [None]
  - BLOOD CHOLESTEROL INCREASED [None]
  - BRADYCARDIA [None]
  - CEREBRAL ATROPHY [None]
  - CHEST PAIN [None]
  - COSTOCHONDRITIS [None]
  - DEPRESSION [None]
  - EPIDERMAL NAEVUS [None]
  - FATIGUE [None]
  - FOOT FRACTURE [None]
  - GASTROINTESTINAL HAEMORRHAGE [None]
  - HEADACHE [None]
  - HYPERTENSION [None]
  - LACUNAR INFARCTION [None]
  - MYOCARDIAL INFARCTION [None]
  - SLEEP DISORDER [None]
  - STRESS [None]
  - TRANSIENT ISCHAEMIC ATTACK [None]
  - ULCER [None]
